FAERS Safety Report 8287075-7 (Version None)
Quarter: 2012Q2

REPORT INFORMATION
  Report Type: 
  Country: None (occurrence: None)
  Receive Date: 20120416
  Receipt Date: 20110908
  Transmission Date: 20120825
  Serious: No
  Sender: FDA-Public Use
  Company Number: US-ALLERGAN-1111926US

PATIENT
  Age: 70 Year
  Sex: Female

DRUGS (4)
  1. ZYMAXID [Suspect]
     Indication: ANTIBIOTIC THERAPY
     Dosage: 1 GTT, QID
     Route: 047
     Dates: start: 20110822, end: 20110907
  2. VIGAMOX [Concomitant]
     Indication: PRODUCT USED FOR UNKNOWN INDICATION
  3. NEVANAC [Concomitant]
     Indication: PRODUCT USED FOR UNKNOWN INDICATION
  4. PREDNISOLONE ACETATE [Concomitant]
     Indication: PRODUCT USED FOR UNKNOWN INDICATION

REACTIONS (1)
  - EYE PAIN [None]
